FAERS Safety Report 4650853-7 (Version None)
Quarter: 2005Q2

REPORT INFORMATION
  Report Type: 
  Country: None (occurrence: None)
  Receive Date: 20050429
  Receipt Date: 20050328
  Transmission Date: 20051028
  Serious: Yes (Other)
  Sender: FDA-Public Use
  Company Number: 200416166BCC

PATIENT
  Age: 58 Year
  Sex: Male
  Weight: 68.9467 kg

DRUGS (1)
  1. ALEVE (CAPLET) [Suspect]
     Dosage: 220 MG, BID, ORAL
     Route: 048
     Dates: start: 19961020, end: 19961121

REACTIONS (14)
  - ASTHMA [None]
  - BLOOD CHOLESTEROL INCREASED [None]
  - BLOOD TRIGLYCERIDES INCREASED [None]
  - CORONARY ARTERY DISEASE [None]
  - COUGH [None]
  - HYPERCHOLESTEROLAEMIA [None]
  - HYPERTENSION [None]
  - HYPOTHYROIDISM [None]
  - LABYRINTHITIS [None]
  - MYOCARDIAL INFARCTION [None]
  - SKIN LESION [None]
  - SMOKER [None]
  - URTICARIA GENERALISED [None]
  - VERTIGO POSITIONAL [None]
